FAERS Safety Report 5864153-0 (Version None)
Quarter: 2008Q3

REPORT INFORMATION
  Report Type: 
  Country: None (occurrence: None)
  Receive Date: 20080829
  Receipt Date: 20080820
  Transmission Date: 20090109
  Serious: Yes (Hospitalization)
  Sender: FDA-Public Use
  Company Number: US-JNJFOC-20080805529

PATIENT
  Sex: Female
  Weight: 54.43 kg

DRUGS (5)
  1. DURAGESIC-100 [Suspect]
     Route: 062
  2. DURAGESIC-100 [Suspect]
     Route: 062
  3. DURAGESIC-100 [Suspect]
     Route: 062
  4. DURAGESIC-100 [Suspect]
     Route: 062
  5. DURAGESIC-100 [Suspect]
     Indication: HEADACHE
     Route: 062

REACTIONS (4)
  - APPLICATION SITE REACTION [None]
  - FURUNCLE [None]
  - RASH [None]
  - WITHDRAWAL SYNDROME [None]
